FAERS Safety Report 9241603 (Version 2)
Quarter: 2013Q2

REPORT INFORMATION
  Report Type: Report from Study
  Country: US (occurrence: US)
  Receive Date: 20130419
  Receipt Date: 20130516
  Transmission Date: 20140414
  Serious: Yes (Hospitalization)
  Sender: FDA-Public Use
  Company Number: US-GENZYME-MOZO-1000842

PATIENT
  Age: 63 Year
  Sex: Female
  Weight: 88.9 kg

DRUGS (9)
  1. MOZOBIL [Suspect]
     Indication: GLIOBLASTOMA
     Dosage: 240 MCG/KG, DAYS 1-21 OF 28 DAYS CYCLE
     Route: 058
     Dates: start: 20130401
  2. AVASTIN [Suspect]
     Indication: GLIOBLASTOMA
     Dosage: 10 MG/KG, DAY 1/15 OF 28 DAY CYCLE
     Route: 042
     Dates: start: 20130401, end: 20130401
  3. ACETAMINOPHEN [Concomitant]
     Indication: PAIN
     Dosage: 325 MG, ONCE PRN
     Route: 048
  4. AMBIEN [Concomitant]
     Indication: INSOMNIA
     Dosage: 10 MG, ONCE; QHS (EVERY NIGHT AT BED TIME) PRN
     Route: 048
  5. ATENOLOL [Concomitant]
     Indication: PRODUCT USED FOR UNKNOWN INDICATION
     Dosage: 50 MG, QD
     Route: 048
  6. LORAZEPAM [Concomitant]
     Indication: ANXIETY
     Dosage: 0.5 MG, Q4H (EVERY 4 HOURS) PRN
     Route: 048
  7. MULTIVITAMIN [Concomitant]
     Indication: PRODUCT ORIGIN UNKNOWN
     Dosage: 1 DF, QD
     Route: 048
  8. TRAZODONE [Concomitant]
     Indication: INSOMNIA
     Dosage: 25 MG (50 MG TAB; 0.5 TABLET), QHS (EVERY NIGHT AT BED TIME) PRN
     Route: 048
  9. VITAMIN D3 [Concomitant]
     Indication: PRODUCT USED FOR UNKNOWN INDICATION
     Dosage: 2000 U, QD
     Route: 048

REACTIONS (2)
  - Wound decomposition [Not Recovered/Not Resolved]
  - Wound infection [Not Recovered/Not Resolved]
